FAERS Safety Report 4524522-8 (Version None)
Quarter: 2004Q4

REPORT INFORMATION
  Report Type: 
  Country: None (occurrence: None)
  Receive Date: 20041117
  Receipt Date: 20040205
  Transmission Date: 20050328
  Serious: Yes (Hospitalization)
  Sender: FDA-Public Use
  Company Number: US-JNJFOC-20040101640

PATIENT
  Age: 56 Year
  Sex: Female
  Weight: 54.8852 kg

DRUGS (4)
  1. LEVAQUIN [Suspect]
     Indication: SINUSITIS
     Dates: start: 20040102, end: 20040103
  2. ALLEGRA-D [Concomitant]
  3. FLONASE [Concomitant]
  4. PREVACID [Concomitant]

REACTIONS (7)
  - BLOOD SODIUM DECREASED [None]
  - CHEST DISCOMFORT [None]
  - DYSPNOEA [None]
  - HYPERGLYCAEMIA [None]
  - OEDEMA PERIPHERAL [None]
  - SWOLLEN TONGUE [None]
  - VOMITING [None]
